FAERS Safety Report 16909778 (Version 8)
Quarter: 2020Q2

REPORT INFORMATION
  Report Type: Spontaneous
  Country: US (occurrence: US)
  Receive Date: 20191011
  Receipt Date: 20200619
  Transmission Date: 20200713
  Serious: Yes (Hospitalization, Other)
  Sender: FDA-Public Use
  Company Number: US-GLAXOSMITHKLINE-US2019179887

PATIENT
  Age: 83 Year
  Sex: Female

DRUGS (1)
  1. ANORO ELLIPTA [Suspect]
     Active Substance: UMECLIDINIUM BROMIDE\VILANTEROL TRIFENATATE
     Indication: CHRONIC OBSTRUCTIVE PULMONARY DISEASE
     Dosage: 1 PUFF(S), QD, 62.5/25 UG
     Route: 055
     Dates: start: 201909

REACTIONS (16)
  - Retching [Unknown]
  - Urinary tract disorder [Unknown]
  - Accidental exposure to product [Unknown]
  - Urinary retention [Unknown]
  - Neuropathy peripheral [Unknown]
  - Ureteral stent insertion [Unknown]
  - Muscle spasms [Unknown]
  - Wrong technique in device usage process [Unknown]
  - Drug ineffective [Unknown]
  - Pulmonary resection [Unknown]
  - Hypertension [Unknown]
  - Product complaint [Unknown]
  - Exposure via skin contact [Unknown]
  - Choking sensation [Unknown]
  - Cough [Unknown]
  - Neck pain [Unknown]

NARRATIVE: CASE EVENT DATE: 201911
